FAERS Safety Report 23813358 (Version 1)
Quarter: 2024Q2

REPORT INFORMATION
  Report Type: Report from Study
  Country: US (occurrence: US)
  Receive Date: 20240503
  Receipt Date: 20240503
  Transmission Date: 20240716
  Serious: Yes (Hospitalization)
  Sender: FDA-Public Use
  Company Number: US-ABBVIE-5741979

PATIENT
  Sex: Female

DRUGS (1)
  1. RINVOQ [Suspect]
     Active Substance: UPADACITINIB
     Indication: Rheumatoid arthritis
     Dosage: ER?STRENGTH: 15 MG
     Route: 048
     Dates: start: 202304, end: 20240305

REACTIONS (8)
  - Syncope [Unknown]
  - Pallor [Unknown]
  - Haemoglobin decreased [Recovering/Resolving]
  - Gastric ulcer haemorrhage [Recovered/Resolved]
  - Rheumatoid arthritis [Unknown]
  - Fatigue [Unknown]
  - Anaemia [Unknown]
  - Lethargy [Unknown]

NARRATIVE: CASE EVENT DATE: 20240101
